FAERS Safety Report 18970850 (Version 6)
Quarter: 2021Q3

REPORT INFORMATION
  Report Type: Spontaneous
  Country: FR (occurrence: FR)
  Receive Date: 20210305
  Receipt Date: 20210719
  Transmission Date: 20211014
  Serious: Yes (Hospitalization)
  Sender: FDA-Public Use
  Company Number: FR-ABBVIE-21K-056-3796466-00

PATIENT
  Age: 73 Year
  Sex: Male

DRUGS (10)
  1. AZACITIDINE. [Suspect]
     Active Substance: AZACITIDINE
     Indication: ACUTE MYELOID LEUKAEMIA
     Route: 041
     Dates: start: 20210128, end: 2021
  2. LENIZOL [Concomitant]
     Indication: FEBRILE NEUTROPENIA
     Route: 065
     Dates: start: 20210122, end: 20210122
  3. NOXAFIL [Concomitant]
     Active Substance: POSACONAZOLE
     Indication: FUNGAL INFECTION
     Route: 065
     Dates: start: 20210115
  4. VANCOMYCIN [Concomitant]
     Active Substance: VANCOMYCIN
     Indication: CLOSTRIDIUM DIFFICILE COLITIS
     Route: 065
     Dates: start: 20210203, end: 20210211
  5. PEVONEDISTAT [Suspect]
     Active Substance: PEVONEDISTAT
     Indication: ACUTE MYELOID LEUKAEMIA
     Route: 065
     Dates: start: 20210128, end: 2021
  6. MEROPENEM. [Concomitant]
     Active Substance: MEROPENEM
     Indication: CLOSTRIDIUM DIFFICILE COLITIS
     Route: 065
     Dates: start: 20210203, end: 20210208
  7. VENETOCLAX. [Suspect]
     Active Substance: VENETOCLAX
     Indication: ACUTE MYELOID LEUKAEMIA
     Route: 048
     Dates: start: 20210128, end: 2021
  8. CEFEPIME [Concomitant]
     Active Substance: CEFEPIME HYDROCHLORIDE
     Indication: FEBRILE NEUTROPENIA
     Route: 065
     Dates: start: 20210121, end: 20210129
  9. AMIKACINE [Concomitant]
     Active Substance: AMIKACIN
     Indication: CLOSTRIDIUM DIFFICILE COLITIS
     Route: 065
     Dates: start: 20210203, end: 20210203
  10. AMLODIPINE [Concomitant]
     Active Substance: AMLODIPINE BESYLATE
     Indication: PRODUCT USED FOR UNKNOWN INDICATION
     Route: 065
     Dates: start: 20210206, end: 20210210

REACTIONS (2)
  - Febrile neutropenia [Recovered/Resolved]
  - Febrile neutropenia [Recovered/Resolved]

NARRATIVE: CASE EVENT DATE: 20210215
